FAERS Safety Report 24239976 (Version 2)
Quarter: 2024Q3

REPORT INFORMATION
  Report Type: Spontaneous
  Country: US (occurrence: US)
  Receive Date: 20240822
  Receipt Date: 20240926
  Transmission Date: 20241017
  Serious: No
  Sender: BRISTOL MYERS SQUIBB
  Company Number: US-BRISTOL-MYERS SQUIBB COMPANY-2024-131737

PATIENT
  Age: 61 Year
  Sex: Female
  Weight: 88.9 kg

DRUGS (2)
  1. POMALYST [Suspect]
     Active Substance: POMALIDOMIDE
     Indication: Plasma cell myeloma
     Route: 048
     Dates: start: 20240814
  2. SELINEXOR [Suspect]
     Active Substance: SELINEXOR
     Indication: Product used for unknown indication

REACTIONS (1)
  - Diarrhoea [Recovering/Resolving]
